FAERS Safety Report 11011753 (Version 2)
Quarter: 2015Q2

REPORT INFORMATION
  Report Type: Spontaneous
  Country: US (occurrence: US)
  Receive Date: 20150410
  Receipt Date: 20150525
  Transmission Date: 20150821
  Serious: No
  Sender: FDA-Public Use
  Company Number: US-JNJFOC-20121212495

PATIENT
  Age: 53 Year
  Sex: Female
  Weight: 48.08 kg

DRUGS (6)
  1. SAVELLA [Suspect]
     Active Substance: MILNACIPRAN HYDROCHLORIDE
     Indication: PRODUCT USED FOR UNKNOWN INDICATION
     Route: 048
     Dates: end: 201211
  2. SAVELLA [Suspect]
     Active Substance: MILNACIPRAN HYDROCHLORIDE
     Indication: PRODUCT USED FOR UNKNOWN INDICATION
     Route: 048
     Dates: start: 20121219
  3. REMICADE [Suspect]
     Active Substance: INFLIXIMAB
     Indication: ARTHRITIS
     Route: 042
     Dates: start: 20121217
  4. REMICADE [Suspect]
     Active Substance: INFLIXIMAB
     Indication: ARTHRITIS
     Route: 042
     Dates: start: 20121016
  5. REMICADE [Suspect]
     Active Substance: INFLIXIMAB
     Indication: FIBROMYALGIA
     Route: 042
     Dates: start: 20121217
  6. REMICADE [Suspect]
     Active Substance: INFLIXIMAB
     Indication: FIBROMYALGIA
     Route: 042
     Dates: start: 20121016

REACTIONS (2)
  - Rash macular [Not Recovered/Not Resolved]
  - Feeling hot [Unknown]

NARRATIVE: CASE EVENT DATE: 20121219
